FAERS Safety Report 20296625 (Version 2)
Quarter: 2022Q1

REPORT INFORMATION
  Report Type: Spontaneous
  Country: US (occurrence: US)
  Receive Date: 20220105
  Receipt Date: 20220203
  Transmission Date: 20220424
  Serious: No
  Sender: FDA-Public Use
  Company Number: US-UNITED THERAPEUTICS-UNT-2021-026926

PATIENT
  Age: 56 Year
  Sex: Female

DRUGS (2)
  1. ORENITRAM [Suspect]
     Active Substance: TREPROSTINIL
     Indication: Product used for unknown indication
     Dosage: UNK
     Route: 048
     Dates: start: 20150301
  2. ORENITRAM [Suspect]
     Active Substance: TREPROSTINIL
     Dosage: 6 MG, BID
     Route: 048

REACTIONS (2)
  - Malaise [Recovered/Resolved]
  - Suspected COVID-19 [Recovered/Resolved]

NARRATIVE: CASE EVENT DATE: 20211228
